FAERS Safety Report 19276223 (Version 1)
Quarter: 2021Q2

REPORT INFORMATION
  Report Type: Spontaneous
  Country: JP (occurrence: JP)
  Receive Date: 20210520
  Receipt Date: 20210520
  Transmission Date: 20210717
  Serious: Yes (Hospitalization, Other)
  Sender: FDA-Public Use
  Company Number: JP-ASTELLAS-2021JP008925

PATIENT
  Age: 73 Year
  Sex: Female

DRUGS (2)
  1. PREDNISOLONE. [Concomitant]
     Active Substance: PREDNISOLONE
     Indication: PRODUCT USED FOR UNKNOWN INDICATION
     Dosage: 6 MG/DAY, UNKNOWN FREQ.
     Route: 048
  2. PROGRAF [Suspect]
     Active Substance: TACROLIMUS
     Indication: PRODUCT USED FOR UNKNOWN INDICATION
     Dosage: 3 MG/DAY, UNKNOWN FREQ.
     Route: 048

REACTIONS (1)
  - Osteonecrosis of jaw [Recovering/Resolving]
